FAERS Safety Report 11718769 (Version 3)
Quarter: 2016Q2

REPORT INFORMATION
  Report Type: Report from Study
  Country: TW (occurrence: TW)
  Receive Date: 20151109
  Receipt Date: 20160615
  Transmission Date: 20160815
  Serious: No
  Sender: FDA-Public Use
  Company Number: PHHY2015TW146595

PATIENT
  Age: 62 Year
  Sex: Male

DRUGS (12)
  1. LACRYMED [Concomitant]
     Indication: HYPERTENSION
     Dosage: UNK
     Route: 065
     Dates: start: 20130726, end: 20131115
  2. SYNTAM [Concomitant]
     Indication: SENILE DEMENTIA
     Dosage: 1200 MG, UNK
     Route: 048
     Dates: start: 20121214, end: 20140723
  3. NORVASC [Concomitant]
     Active Substance: AMLODIPINE BESYLATE
     Indication: PRODUCT USED FOR UNKNOWN INDICATION
     Dosage: 5 MG, UNK
     Route: 048
     Dates: start: 20141015
  4. LACRYMED [Concomitant]
     Indication: OCULAR DISCOMFORT
  5. IWELL [Concomitant]
     Dosage: 1 DF, UNK
     Route: 048
     Dates: start: 20130628, end: 20131017
  6. TASIGNA [Suspect]
     Active Substance: NILOTINIB
     Indication: CHRONIC MYELOID LEUKAEMIA
     Dosage: 600 MG, UNK
     Route: 048
     Dates: start: 20120727
  7. IWELL [Concomitant]
     Indication: GASTROINTESTINAL DISORDER
     Dosage: 1 DF, OT
     Route: 048
     Dates: end: 20130627
  8. BENZONATATE. [Concomitant]
     Active Substance: BENZONATATE
     Indication: PRODUCT USED FOR UNKNOWN INDICATION
     Dosage: 100 MG, UNK
     Route: 048
     Dates: start: 20141015, end: 20141021
  9. ACETHYL CYSTEINE [Concomitant]
     Indication: PRODUCT USED FOR UNKNOWN INDICATION
     Dosage: 600 MG, UNK
     Route: 048
     Dates: start: 20150429, end: 20150506
  10. PEICHIA [Concomitant]
     Indication: GASTROINTESTINAL DISORDER
     Dosage: 1 DF, UNK
     Route: 048
     Dates: start: 20131212
  11. NEOSTIGMINE METHYLSULFATE. [Concomitant]
     Active Substance: NEOSTIGMINE METHYLSULFATE
     Indication: PRODUCT USED FOR UNKNOWN INDICATION
     Dosage: UNK
     Route: 065
     Dates: start: 20130628, end: 20131115
  12. TEARS NATURALE FREE [Concomitant]
     Active Substance: DEXTRAN 70\HYPROMELLOSE 2910 (4000 MPA.S)
     Indication: PRODUCT USED FOR UNKNOWN INDICATION
     Dosage: 15 MG, UNK
     Route: 065
     Dates: start: 20130628, end: 20131115

REACTIONS (2)
  - Headache [Recovered/Resolved]
  - Hypertension [Not Recovered/Not Resolved]

NARRATIVE: CASE EVENT DATE: 20140529
